FAERS Safety Report 8082660-X (Version None)
Quarter: 2012Q1

REPORT INFORMATION
  Report Type: 
  Country: None (occurrence: None)
  Receive Date: 20120127
  Receipt Date: 20110224
  Transmission Date: 20120608
  Serious: No
  Sender: FDA-Public Use
  Company Number: US-ABBOTT-11P-163-0707488-00

PATIENT
  Age: 46 Year
  Sex: Male

DRUGS (5)
  1. XANAX [Concomitant]
     Indication: PRODUCT USED FOR UNKNOWN INDICATION
  2. SEROQUEL [Concomitant]
     Indication: BIPOLAR DISORDER
  3. ZOLOFT [Concomitant]
     Indication: BIPOLAR DISORDER
  4. PERCOCET [Concomitant]
     Indication: PAIN
     Dosage: 10/325MG 2 TABS EVERY 4 HOURS AS NEEDED
  5. HUMIRA [Suspect]
     Indication: CROHN'S DISEASE
     Dates: start: 20090101

REACTIONS (3)
  - INJECTION SITE PAIN [None]
  - PAIN [None]
  - WRONG TECHNIQUE IN DRUG USAGE PROCESS [None]
